FAERS Safety Report 9235767 (Version 2)
Quarter: 2013Q2

REPORT INFORMATION
  Report Type: Report from Study
  Country: CY (occurrence: CY)
  Receive Date: 20130417
  Receipt Date: 20130422
  Transmission Date: 20140414
  Serious: Yes (Other)
  Sender: FDA-Public Use
  Company Number: PHHY2013CY035899

PATIENT
  Age: 75 Year
  Sex: Male

DRUGS (3)
  1. ZOMETA [Suspect]
     Dosage: 4 MG, 4 WEEKLY
     Route: 042
     Dates: start: 20101210, end: 20111221
  2. ZOLADEX [Concomitant]
     Indication: PROSTATE CANCER
     Dosage: 10.8 MG, 6 MONTHLY
     Dates: start: 20090817
  3. ABIRATERONE [Concomitant]
     Indication: OESOPHAGEAL CARCINOMA
     Dosage: 20 MG, 4 TABLETS DAILY
     Dates: start: 20111103

REACTIONS (7)
  - Osteonecrosis of jaw [Not Recovered/Not Resolved]
  - Pain in jaw [Not Recovered/Not Resolved]
  - Tooth abscess [Not Recovered/Not Resolved]
  - Swelling [Unknown]
  - Erythema [Unknown]
  - Bone lesion [Unknown]
  - Exposed bone in jaw [Unknown]
